FAERS Safety Report 7124673-8 (Version None)
Quarter: 2010Q4

REPORT INFORMATION
  Report Type: 
  Country: None (occurrence: None)
  Receive Date: 20101129
  Receipt Date: 20101115
  Transmission Date: 20110411
  Serious: Yes (Other)
  Sender: FDA-Public Use
  Company Number: CN-RANBAXY-2010R1-39706

PATIENT
  Age: 41 Year
  Sex: Male

DRUGS (2)
  1. PHENOBARBITAL TAB [Suspect]
     Indication: PRODUCT USED FOR UNKNOWN INDICATION
     Dosage: 400 MG, UNK
     Route: 042
     Dates: start: 19930101
  2. PHENOBARBITAL TAB [Suspect]
     Dosage: UNK
     Route: 065
     Dates: start: 20010101

REACTIONS (1)
  - DRUG ERUPTION [None]
